FAERS Safety Report 8228848 (Version 6)
Quarter: 2013Q2

REPORT INFORMATION
  Report Type: Spontaneous
  Country: JP (occurrence: JP)
  Receive Date: 20111104
  Receipt Date: 20130429
  Transmission Date: 20140414
  Serious: Yes (Hospitalization, Disabling)
  Sender: FDA-Public Use
  Company Number: JP-BRISTOL-MYERS SQUIBB COMPANY-15971237

PATIENT
  Age: 67 Year
  Sex: Male
  Weight: 51 kg

DRUGS (9)
  1. ABILIFY TABS [Suspect]
     Indication: SCHIZOPHRENIA
     Dosage: DOSE:12MG,9MG.?RESTARTED 26AUG11-31AUG11, 3MG/DAY.?1SEP11-7SEP11 6MG, 8SEP-13SEP 9MG
     Route: 048
     Dates: start: 2010
  2. ABILIFY ORAL SOLUTION [Interacting]
     Indication: HALLUCINATION
     Dosage: 28JUN10:17MAR:18MG,18MAR:8JUL:15MG,9:31JUL:12MG,1:4AUG:9MG,26:31AUG:3MG,1:7SEP:6MG,8:13SEP11:9MG
     Route: 048
     Dates: start: 20100628
  3. KLARICID [Interacting]
     Indication: UPPER RESPIRATORY TRACT INFLAMMATION
     Dosage: TABS
     Route: 048
     Dates: start: 20110716, end: 20110720
  4. PYRETHIA [Concomitant]
     Dosage: TABS
     Dates: start: 20110407, end: 20110804
  5. RIVOTRIL [Concomitant]
     Dosage: 1DF = TAB
     Dates: start: 20110513, end: 20110804
  6. CLARITH [Concomitant]
     Indication: UPPER RESPIRATORY TRACT INFECTION
  7. CLARITH [Concomitant]
     Indication: PHARYNGITIS
  8. BENZALIN [Concomitant]
     Dosage: TABS
     Dates: start: 20100628, end: 20110804
  9. MYSLEE [Concomitant]
     Dosage: TABS
     Dates: start: 20110407, end: 20110804

REACTIONS (7)
  - Rhabdomyolysis [Recovered/Resolved]
  - Renal failure acute [Recovered/Resolved]
  - Blood creatine phosphokinase increased [Recovered/Resolved]
  - Drug interaction [Recovered/Resolved]
  - Salivary hypersecretion [Recovering/Resolving]
  - Bradykinesia [Not Recovered/Not Resolved]
  - Urinary retention [Not Recovered/Not Resolved]
